FAERS Safety Report 18774965 (Version 1)
Quarter: 2021Q1

REPORT INFORMATION
  Report Type: Report from Study
  Country: US (occurrence: US)
  Receive Date: 20210122
  Receipt Date: 20210122
  Transmission Date: 20210419
  Serious: Yes (Other)
  Sender: FDA-Public Use
  Company Number: US-JNJFOC-20210120921

PATIENT
  Age: 25 Year
  Sex: Male

DRUGS (3)
  1. SPRAVATO [Suspect]
     Active Substance: ESKETAMINE
     Indication: DEPRESSION
     Dosage: 56MG, 2 TOTAL DOSES
     Dates: start: 20201222, end: 20201223
  2. SPRAVATO [Suspect]
     Active Substance: ESKETAMINE
     Dates: start: 20210112, end: 20210112
  3. SPRAVATO [Suspect]
     Active Substance: ESKETAMINE
     Dosage: 84 MG, 4 TOTAL DOSES
     Dates: start: 20201229, end: 20210106

REACTIONS (2)
  - Affect lability [Recovered/Resolved]
  - Suicide threat [Recovered/Resolved]

NARRATIVE: CASE EVENT DATE: 20210112
